FAERS Safety Report 7214159-4 (Version None)
Quarter: 2011Q1

REPORT INFORMATION
  Report Type: 
  Country: None (occurrence: None)
  Receive Date: 20110107
  Receipt Date: 20101229
  Transmission Date: 20110831
  Serious: Yes (Hospitalization, Other)
  Sender: FDA-Public Use
  Company Number: FI-JNJFOC-20101209202

PATIENT
  Sex: Female

DRUGS (3)
  1. REMICADE [Suspect]
     Indication: RHEUMATOID ARTHRITIS
     Route: 042
  2. SINGULAIR [Suspect]
     Indication: ASTHMA
  3. CRESTOR [Suspect]
     Indication: PRODUCT USED FOR UNKNOWN INDICATION

REACTIONS (5)
  - HEPATIC ENZYME INCREASED [None]
  - VISUAL ACUITY REDUCED [None]
  - PULMONARY TUBERCULOSIS [None]
  - PULMONARY EMBOLISM [None]
  - WEIGHT DECREASED [None]
